FAERS Safety Report 13765598 (Version 2)
Quarter: 2017Q3

REPORT INFORMATION
  Report Type: Report from Study
  Country: US (occurrence: US)
  Receive Date: 20170718
  Receipt Date: 20170808
  Transmission Date: 20171127
  Serious: Yes (Death)
  Sender: FDA-Public Use
  Company Number: US-EXELIXIS-CABO-17009802

PATIENT
  Sex: Female

DRUGS (21)
  1. ALPHA LIPOIC ACID [Concomitant]
     Active Substance: .ALPHA.-LIPOIC ACID
  2. LORAZEPAM. [Concomitant]
     Active Substance: LORAZEPAM
  3. MACROBID [Concomitant]
     Active Substance: NITROFURANTOIN\NITROFURANTOIN MONOHYDRATE
  4. MIRTAZAPINE. [Concomitant]
     Active Substance: MIRTAZAPINE
  5. ONDANSETRON [Concomitant]
     Active Substance: ONDANSETRON
  6. PHENAZOPYRIDINE. [Concomitant]
     Active Substance: PHENAZOPYRIDINE
  7. GABAPENTIN. [Concomitant]
     Active Substance: GABAPENTIN
  8. IBUPROFEN. [Concomitant]
     Active Substance: IBUPROFEN
  9. CABOMETYX [Suspect]
     Active Substance: CABOZANTINIB S-MALATE
     Indication: TRANSITIONAL CELL CARCINOMA
     Dosage: 40 MG, QD
     Route: 048
     Dates: start: 20170331, end: 20170701
  10. LORATADINE. [Concomitant]
     Active Substance: LORATADINE
  11. OMEPRAZOLE. [Concomitant]
     Active Substance: OMEPRAZOLE
  12. BACTRIM [Concomitant]
     Active Substance: SULFAMETHOXAZOLE\TRIMETHOPRIM
  13. ACETAMINOPHEN. [Concomitant]
     Active Substance: ACETAMINOPHEN
  14. VITAMIN D3 [Concomitant]
     Active Substance: CHOLECALCIFEROL
  15. LIDOCAINE. [Concomitant]
     Active Substance: LIDOCAINE
  16. EMLA [Concomitant]
     Active Substance: LIDOCAINE\PRILOCAINE
  17. SENOKOT [Concomitant]
     Active Substance: SENNOSIDES
  18. FENTANYL. [Concomitant]
     Active Substance: FENTANYL
  19. NORCO [Concomitant]
     Active Substance: ACETAMINOPHEN\HYDROCODONE BITARTRATE
  20. MORPHINE SULFATE. [Concomitant]
     Active Substance: MORPHINE SULFATE
  21. XGEVA [Concomitant]
     Active Substance: DENOSUMAB

REACTIONS (2)
  - Off label use [Unknown]
  - Malignant neoplasm progression [Fatal]
